FAERS Safety Report 5161629-9 (Version None)
Quarter: 2006Q4

REPORT INFORMATION
  Report Type: 
  Country: None (occurrence: None)
  Receive Date: 20061130
  Receipt Date: 20020726
  Transmission Date: 20070319
  Serious: No
  Sender: FDA-Public Use
  Company Number: US-BRISTOL-MYERS SQUIBB COMPANY-11969433

PATIENT
  Age: 44 Year
  Sex: Female

DRUGS (7)
  1. GLUCOPHAGE XR [Suspect]
     Indication: INSULIN RESISTANCE
     Dosage: INTERRUPTED ON 2 OCCASIONS
     Route: 048
  2. GLUCOPHAGE [Suspect]
  3. PAXIL [Concomitant]
  4. WELLBUTRIN [Concomitant]
  5. DESYREL [Concomitant]
  6. KLONOPIN [Concomitant]
  7. TRICOR [Concomitant]

REACTIONS (2)
  - ABDOMINAL PAIN UPPER [None]
  - DIARRHOEA [None]
